FAERS Safety Report 5183945-7 (Version None)
Quarter: 2006Q4

REPORT INFORMATION
  Report Type: 
  Country: None (occurrence: None)
  Receive Date: 20061220
  Receipt Date: 20060301
  Transmission Date: 20070319
  Serious: No
  Sender: FDA-Public Use
  Company Number: US-GLAXOSMITHKLINE-A0595655A

PATIENT
  Age: 52 Year
  Sex: Female

DRUGS (3)
  1. EQUATE NTS 21MG [Suspect]
     Dates: start: 20051013
  2. EQUATE NTS 14MG [Suspect]
  3. EQUATE NTS 7MG [Suspect]

REACTIONS (2)
  - AMENORRHOEA [None]
  - VAGINAL DISCHARGE [None]
